FAERS Safety Report 5034100-2 (Version None)
Quarter: 2006Q2

REPORT INFORMATION
  Report Type: 
  Country: None (occurrence: None)
  Receive Date: 20060626
  Receipt Date: 20060620
  Transmission Date: 20061013
  Serious: Yes (Life-Threatening, Hospitalization)
  Sender: FDA-Public Use
  Company Number: 2006AP02877

PATIENT
  Age: 66 Year
  Sex: Male

DRUGS (3)
  1. XYLOCAINE [Suspect]
     Indication: LOCAL ANAESTHESIA
     Route: 049
  2. SESDEN [Concomitant]
     Dates: start: 20060619, end: 20060619
  3. CERCINE [Concomitant]
     Dates: start: 20060619, end: 20060619

REACTIONS (2)
  - BLOOD PRESSURE DECREASED [None]
  - RASH [None]
